FAERS Safety Report 8612280-7 (Version None)
Quarter: 2012Q3

REPORT INFORMATION
  Report Type: 
  Country: None (occurrence: None)
  Receive Date: 20120822
  Receipt Date: 20120816
  Transmission Date: 20120928
  Serious: Yes (Other)
  Sender: FDA-Public Use
  Company Number: PL-PFIZER INC-2012201645

PATIENT
  Sex: Female

DRUGS (1)
  1. CLINDAMYCIN HCL [Suspect]

REACTIONS (2)
  - COLITIS ULCERATIVE [None]
  - GASTROINTESTINAL DISORDER [None]
